FAERS Safety Report 11391521 (Version 1)
Quarter: 2015Q3

REPORT INFORMATION
  Report Type: Spontaneous
  Country: US (occurrence: US)
  Receive Date: 20150818
  Receipt Date: 20150818
  Transmission Date: 20151125
  Serious: No
  Sender: FDA-Public Use
  Company Number: ALCN2015US004646

PATIENT
  Sex: Female

DRUGS (1)
  1. TRAVATAN Z [Suspect]
     Active Substance: TRAVOPROST
     Indication: PRODUCT USED FOR UNKNOWN INDICATION
     Dosage: 1 GTT, UNK
     Route: 047
     Dates: start: 20150220, end: 20150719

REACTIONS (4)
  - Lid sulcus deepened [Not Recovered/Not Resolved]
  - Skin discolouration [Recovering/Resolving]
  - Erythema [Not Recovered/Not Resolved]
  - Ocular hyperaemia [Unknown]
